FAERS Safety Report 7243609-2 (Version None)
Quarter: 2011Q1

REPORT INFORMATION
  Report Type: 
  Country: None (occurrence: None)
  Receive Date: 20110125
  Receipt Date: 20110114
  Transmission Date: 20110831
  Serious: Yes (Hospitalization)
  Sender: FDA-Public Use
  Company Number: PHHY2011CA03345

PATIENT
  Sex: Female

DRUGS (1)
  1. SANDOSTATIN LAR [Suspect]
     Indication: SHORT-BOWEL SYNDROME
     Dosage: 10 MG, QMO
     Route: 030
     Dates: start: 20071115

REACTIONS (1)
  - INTESTINAL PERFORATION [None]
